FAERS Safety Report 9200535 (Version 1)
Quarter: 2013Q1

REPORT INFORMATION
  Report Type: Other
  Country: IT (occurrence: IT)
  Receive Date: 20130329
  Receipt Date: 20130329
  Transmission Date: 20140127
  Serious: Yes (Death)
  Sender: FDA-Public Use
  Company Number: IT-WATSON-2013-05350

PATIENT
  Age: 78 Year
  Sex: Male

DRUGS (3)
  1. METFORMIN HYDROCHLORIDE (UNKNOWN) [Suspect]
     Indication: TYPE 2 DIABETES MELLITUS
     Dosage: 3 G, DAILY
     Route: 048
     Dates: start: 20120101, end: 20130128
  2. ENAPREN [Concomitant]
     Indication: PRODUCT USED FOR UNKNOWN INDICATION
     Dosage: UNK, UNKNOWN
     Route: 065
  3. ACETYLSALICYLIC ACID ALUMINIUM [Concomitant]
     Indication: PRODUCT USED FOR UNKNOWN INDICATION
     Dosage: UNK, UNKNOWN
     Route: 065

REACTIONS (3)
  - Prerenal failure [Fatal]
  - Lactic acidosis [Fatal]
  - Drug abuse [Fatal]
